FAERS Safety Report 25508932 (Version 4)
Quarter: 2025Q3

REPORT INFORMATION
  Report Type: Report from Study
  Country: CA (occurrence: CA)
  Receive Date: 20250703
  Receipt Date: 20250926
  Transmission Date: 20251021
  Serious: Yes (Other)
  Sender: JOHNSON AND JOHNSON
  Company Number: CA-JNJFOC-20250413316

PATIENT
  Age: 8 Decade
  Sex: Female

DRUGS (6)
  1. SIMPONI [Suspect]
     Active Substance: GOLIMUMAB
     Indication: Rheumatoid arthritis
     Dosage: LAST DOSE:18-MAR-2025
     Route: 058
     Dates: start: 20240401
  2. SIMPONI [Suspect]
     Active Substance: GOLIMUMAB
     Dosage: LAST DOSE:18-MAR-2025
     Route: 058
     Dates: start: 20240401
  3. PROPRANOLOL HYDROCHLORIDE [Suspect]
     Active Substance: PROPRANOLOL HYDROCHLORIDE
     Indication: Tachycardia
     Route: 065
  4. PREDNISONE [Concomitant]
     Active Substance: PREDNISONE
     Indication: Product used for unknown indication
  5. METHOTREXATE [Concomitant]
     Active Substance: METHOTREXATE
     Indication: Product used for unknown indication
  6. PREDNISONE [Concomitant]
     Active Substance: PREDNISONE
     Indication: Rheumatoid arthritis

REACTIONS (7)
  - Rheumatoid arthritis [Unknown]
  - Rash [Not Recovered/Not Resolved]
  - Throat irritation [Recovered/Resolved]
  - Ear infection [Recovered/Resolved]
  - Tachycardia [Recovered/Resolved]
  - Rash pruritic [Recovering/Resolving]
  - Lymphadenopathy [Unknown]

NARRATIVE: CASE EVENT DATE: 20240101
